FAERS Safety Report 11318947 (Version 2)
Quarter: 2015Q3

REPORT INFORMATION
  Report Type: Report from Study
  Country: US (occurrence: US)
  Receive Date: 20150729
  Receipt Date: 20150729
  Transmission Date: 20151125
  Serious: No
  Sender: FDA-Public Use
  Company Number: PHEH2014US024706

PATIENT
  Sex: Male
  Weight: 63.49 kg

DRUGS (1)
  1. ZORTRESS [Suspect]
     Active Substance: EVEROLIMUS
     Indication: TRANSPLANT
     Dosage: 0.75 MG, UNK
     Route: 048
     Dates: start: 20140829, end: 20140925

REACTIONS (1)
  - Dizziness [Recovering/Resolving]
